FAERS Safety Report 10867234 (Version 1)
Quarter: 2015Q1

REPORT INFORMATION
  Report Type: Spontaneous
  Country: US (occurrence: US)
  Receive Date: 20150225
  Receipt Date: 20150225
  Transmission Date: 20150721
  Serious: Yes (Other)
  Sender: FDA-Public Use
  Company Number: PHEH2015US003313

PATIENT
  Age: 68 Year
  Sex: Female

DRUGS (9)
  1. GLEEVEC [Suspect]
     Active Substance: IMATINIB MESYLATE
     Indication: GASTROINTESTINAL STROMAL TUMOUR
     Dosage: 400 MG,PER DAY
     Route: 048
     Dates: start: 2012
  2. LEVOTHYROXIN [Concomitant]
     Active Substance: LEVOTHYROXINE
     Indication: PRODUCT USED FOR UNKNOWN INDICATION
     Route: 048
  3. AMBIEN [Concomitant]
     Active Substance: ZOLPIDEM TARTRATE
     Indication: PRODUCT USED FOR UNKNOWN INDICATION
     Route: 048
  4. AMLODIPINE [Concomitant]
     Active Substance: AMLODIPINE BESYLATE
     Indication: PRODUCT USED FOR UNKNOWN INDICATION
     Route: 048
  5. PRILOSEC [Concomitant]
     Active Substance: OMEPRAZOLE MAGNESIUM
     Indication: PRODUCT USED FOR UNKNOWN INDICATION
     Route: 048
  6. LEXAPRO [Concomitant]
     Active Substance: ESCITALOPRAM OXALATE
     Indication: PRODUCT USED FOR UNKNOWN INDICATION
     Route: 048
  7. PRINIVIL [Concomitant]
     Active Substance: LISINOPRIL
     Indication: PRODUCT USED FOR UNKNOWN INDICATION
     Route: 048
  8. LASIX [Concomitant]
     Active Substance: FUROSEMIDE
     Indication: PRODUCT USED FOR UNKNOWN INDICATION
     Route: 048
  9. ATENOLOL. [Concomitant]
     Active Substance: ATENOLOL
     Indication: PRODUCT USED FOR UNKNOWN INDICATION
     Route: 048

REACTIONS (23)
  - Dysuria [Unknown]
  - Groin pain [Recovering/Resolving]
  - Metastases to kidney [Unknown]
  - Hepatomegaly [Unknown]
  - Night sweats [Unknown]
  - Pain in extremity [Unknown]
  - Gastrointestinal stromal tumour [Unknown]
  - Pyrexia [Unknown]
  - Deafness [Unknown]
  - Malignant neoplasm progression [Unknown]
  - Abdominal distension [Unknown]
  - Fractured sacrum [Unknown]
  - Pelvic abscess [Unknown]
  - Abdominal tenderness [Unknown]
  - Blood pressure increased [Unknown]
  - Rash [Unknown]
  - Stress fracture [Unknown]
  - Metastases to liver [Unknown]
  - Chills [Unknown]
  - Diarrhoea [Unknown]
  - Metastases to pelvis [Unknown]
  - Drug intolerance [Unknown]
  - Abdominal pain lower [Unknown]

NARRATIVE: CASE EVENT DATE: 201501
